FAERS Safety Report 10404917 (Version 1)
Quarter: 2014Q3

REPORT INFORMATION
  Report Type: Spontaneous
  Country: US (occurrence: US)
  Receive Date: 20140825
  Receipt Date: 20140825
  Transmission Date: 20150326
  Serious: No
  Sender: FDA-Public Use
  Company Number: US-009507513-1408USA005313

PATIENT
  Sex: Male

DRUGS (4)
  1. NEUPOGEN [Suspect]
     Active Substance: FILGRASTIM
     Indication: PRODUCT USED FOR UNKNOWN INDICATION
  2. COPEGUS [Suspect]
     Active Substance: RIBAVIRIN
     Indication: HEPATITIS C
     Dosage: 600 MG, EVERY MORNING, EVERY EVEING, BID
     Route: 048
  3. VICTRELIS [Suspect]
     Active Substance: BOCEPREVIR
     Indication: HEPATITIS C
     Route: 048
  4. PEGASYS [Suspect]
     Active Substance: PEGINTERFERON ALFA-2A
     Indication: HEPATITIS C
     Dosage: 180 MICROGRAM, QW
     Route: 058

REACTIONS (10)
  - Otitis media [Unknown]
  - Ear congestion [Unknown]
  - Cerumen impaction [Unknown]
  - Ear pain [Unknown]
  - Myalgia [Unknown]
  - Dermatitis exfoliative [Unknown]
  - Neutropenia [Unknown]
  - Otitis externa [Unknown]
  - Dermatitis [Unknown]
  - Dyspepsia [Unknown]
